FAERS Safety Report 11131458 (Version 1)
Quarter: 2015Q2

REPORT INFORMATION
  Report Type: Spontaneous
  Country: US (occurrence: US)
  Receive Date: 20150522
  Receipt Date: 20150522
  Transmission Date: 20150821
  Serious: No
  Sender: FDA-Public Use
  Company Number: US-ASTRAZENECA-2015SE49010

PATIENT
  Age: 59 Year
  Sex: Male
  Weight: 99.8 kg

DRUGS (6)
  1. OMEPRAZOLE. [Concomitant]
     Active Substance: OMEPRAZOLE
     Indication: PHARYNGEAL DISORDER
     Route: 048
  2. SIMVASTATIN. [Concomitant]
     Active Substance: SIMVASTATIN
     Indication: PHARYNGEAL DISORDER
     Route: 048
  3. BYDUREON [Suspect]
     Active Substance: EXENATIDE
     Indication: TYPE 2 DIABETES MELLITUS
     Route: 058
     Dates: start: 2013
  4. METFORMIN [Concomitant]
     Active Substance: METFORMIN HYDROCHLORIDE
     Indication: TYPE 2 DIABETES MELLITUS
     Route: 048
  5. LISINOPRIL. [Suspect]
     Active Substance: LISINOPRIL
     Route: 048
  6. BYETTA [Suspect]
     Active Substance: EXENATIDE
     Indication: TYPE 2 DIABETES MELLITUS
     Dosage: TWO TIMES A DAY
     Route: 058
     Dates: start: 2013

REACTIONS (4)
  - Underdose [Unknown]
  - Pharyngeal disorder [Not Recovered/Not Resolved]
  - Cough [Not Recovered/Not Resolved]
  - Drug hypersensitivity [Unknown]

NARRATIVE: CASE EVENT DATE: 2014
